FAERS Safety Report 20496938 (Version 1)
Quarter: 2022Q1

REPORT INFORMATION
  Report Type: Spontaneous
  Country: CA (occurrence: CA)
  Receive Date: 20220221
  Receipt Date: 20220221
  Transmission Date: 20220423
  Serious: Yes (Disabling)
  Sender: FDA-Public Use
  Company Number: CA-TAKEDA-2022TUS011397

PATIENT
  Age: 26 Year
  Sex: Female
  Weight: 72 kg

DRUGS (1)
  1. VYVANSE [Suspect]
     Active Substance: LISDEXAMFETAMINE DIMESYLATE
     Indication: Attention deficit hyperactivity disorder
     Dosage: 30 MILLIGRAM, QD
     Route: 048

REACTIONS (4)
  - Migraine [Recovered/Resolved]
  - Muscle tightness [Recovered/Resolved]
  - Pain in jaw [Recovered/Resolved]
  - Therapy change [Recovered/Resolved]
